FAERS Safety Report 13368255 (Version 1)
Quarter: 2017Q1

REPORT INFORMATION
  Report Type: Spontaneous
  Country: BR (occurrence: BR)
  Receive Date: 20170324
  Receipt Date: 20170324
  Transmission Date: 20170429
  Serious: Yes (Hospitalization, Other)
  Sender: FDA-Public Use
  Company Number: BR-ALVOGEN-2017-ALVOGEN-091785

PATIENT
  Age: 66 Year
  Sex: Male
  Weight: 73 kg

DRUGS (6)
  1. ATENOL [Suspect]
     Active Substance: ATENOLOL
     Indication: BLOOD PRESSURE INCREASED
     Route: 048
     Dates: start: 2016
  2. JANUMET [Concomitant]
     Active Substance: METFORMIN HYDROCHLORIDE\SITAGLIPTIN PHOSPHATE
     Indication: TYPE 2 DIABETES MELLITUS
     Route: 048
     Dates: start: 2003
  3. DIAMICRON [Concomitant]
     Active Substance: GLICLAZIDE
     Indication: TYPE 2 DIABETES MELLITUS
  4. ASA INFANTIL [Concomitant]
     Active Substance: ASPIRIN
     Route: 048
     Dates: start: 2006
  5. STANGLIT [Concomitant]
     Active Substance: PIOGLITAZONE HYDROCHLORIDE
     Indication: TYPE 2 DIABETES MELLITUS
  6. CRESTOR [Suspect]
     Active Substance: ROSUVASTATIN CALCIUM
     Indication: HYPERCHOLESTEROLAEMIA
     Dates: start: 2006

REACTIONS (3)
  - Arterial occlusive disease [Recovered/Resolved]
  - Hyperglycaemia [Recovered/Resolved]
  - Visual impairment [Recovered/Resolved]
